FAERS Safety Report 4874070-0 (Version None)
Quarter: 2005Q4

REPORT INFORMATION
  Report Type: 
  Country: None (occurrence: None)
  Receive Date: 20051201
  Receipt Date: 20050808
  Transmission Date: 20060501
  Serious: No
  Sender: FDA-Public Use
  Company Number: 2005PV000931

PATIENT
  Age: 56 Year
  Sex: Female
  Weight: 99.3377 kg

DRUGS (9)
  1. BYETTA [Suspect]
     Indication: DIABETES MELLITUS NON-INSULIN-DEPENDENT
     Dosage: 5 MCG;BID;SC
     Route: 058
     Dates: start: 20050710
  2. FORTAMET [Concomitant]
  3. ZYRTEC [Concomitant]
  4. ALBUTEROL [Concomitant]
  5. COZAAR [Concomitant]
  6. ZOCOR [Concomitant]
  7. ASPIRIN [Concomitant]
  8. ALLERGY SHOTS [Concomitant]
  9. GLUCOPHAGE [Concomitant]

REACTIONS (6)
  - BLOOD GLUCOSE INCREASED [None]
  - DIARRHOEA [None]
  - NAUSEA [None]
  - NERVOUSNESS [None]
  - WEIGHT DECREASED [None]
  - WHEEZING [None]
